FAERS Safety Report 20818174 (Version 1)
Quarter: 2022Q2

REPORT INFORMATION
  Report Type: Spontaneous
  Country: US (occurrence: US)
  Receive Date: 20220512
  Receipt Date: 20220512
  Transmission Date: 20220721
  Serious: No
  Sender: FDA-Public Use
  Company Number: US-PFIZER INC-202200036559

PATIENT
  Age: 77 Year
  Sex: Male
  Weight: 104.33 kg

DRUGS (2)
  1. XELJANZ XR [Suspect]
     Active Substance: TOFACITINIB CITRATE
     Indication: Rheumatoid arthritis
     Dosage: 11 MG
     Dates: start: 2020, end: 2021
  2. XELJANZ XR [Suspect]
     Active Substance: TOFACITINIB CITRATE
     Dosage: 11 MG (HE TAKES THE XELJANZ XR IN  THE EVENING AND EVERYTHING IS GOOD FOR HIM IN THE MORNING.)
     Dates: start: 202111

REACTIONS (1)
  - Pain [Unknown]
